FAERS Safety Report 6380268-5 (Version None)
Quarter: 2009Q3

REPORT INFORMATION
  Report Type: 
  Country: None (occurrence: None)
  Receive Date: 20090929
  Receipt Date: 20090916
  Transmission Date: 20100115
  Serious: Yes (Hospitalization, Other)
  Sender: FDA-Public Use
  Company Number: US-ROCHE-652965

PATIENT
  Sex: Female
  Weight: 54.9 kg

DRUGS (21)
  1. PEGASYS [Suspect]
     Indication: HEPATITIS C
     Route: 058
     Dates: start: 20070924, end: 20080618
  2. COPEGUS [Suspect]
     Indication: HEPATITIS C
     Route: 048
     Dates: start: 20070924, end: 20080618
  3. COREG [Suspect]
     Route: 048
  4. WELLBUTRIN [Concomitant]
  5. LEXAPRO [Concomitant]
  6. PROVIGIL [Concomitant]
     Dosage: DAILY
  7. NORETHINDRONE [Concomitant]
  8. VIVELLE [Concomitant]
     Indication: HORMONE REPLACEMENT THERAPY
     Dosage: DOSE: 0.5 MG/0.1 MG
  9. LEVOTHYROXINE SODIUM [Concomitant]
     Indication: HYPOTHYROIDISM
     Route: 048
  10. ATACAND [Concomitant]
     Route: 048
  11. ATACAND [Concomitant]
     Route: 048
  12. DIGOXIN [Concomitant]
     Route: 048
  13. KAPIDEX [Concomitant]
  14. CARAFATE [Concomitant]
  15. ESTROGEN [Concomitant]
  16. OMACOR [Concomitant]
  17. COENZYME Q10 [Concomitant]
  18. MILK THISTLE [Concomitant]
  19. CONCERTA [Concomitant]
  20. ESTRAGEST TTS [Concomitant]
  21. TRICOR [Concomitant]

REACTIONS (21)
  - ANAEMIA [None]
  - BACK PAIN [None]
  - CARDIAC FAILURE [None]
  - CONFUSIONAL STATE [None]
  - DECREASED APPETITE [None]
  - DISTURBANCE IN ATTENTION [None]
  - DIZZINESS [None]
  - DRY MOUTH [None]
  - DYSPNOEA [None]
  - FATIGUE [None]
  - HEADACHE [None]
  - INFLUENZA LIKE ILLNESS [None]
  - IRRITABILITY [None]
  - NAUSEA [None]
  - OTITIS EXTERNA [None]
  - PANCYTOPENIA [None]
  - PERIPHERAL COLDNESS [None]
  - PRURITUS [None]
  - PYREXIA [None]
  - RASH [None]
  - WEIGHT DECREASED [None]
